FAERS Safety Report 24181323 (Version 1)
Quarter: 2024Q3

REPORT INFORMATION
  Report Type: Report from Study
  Country: US (occurrence: None)
  Receive Date: 20240807
  Receipt Date: 20240807
  Transmission Date: 20241016
  Serious: Yes (Other)
  Sender: ASTRAZENECA
  Company Number: 2021A225223

PATIENT
  Sex: Female

DRUGS (2)
  1. TAGRISSO [Suspect]
     Active Substance: OSIMERTINIB
     Indication: Lung carcinoma cell type unspecified stage 0
     Route: 048
  2. TAGRISSO [Suspect]
     Active Substance: OSIMERTINIB
     Indication: Lung carcinoma cell type unspecified stage 0
     Route: 048

REACTIONS (6)
  - Dry skin [Recovered/Resolved]
  - Hepatotoxicity [Recovered/Resolved]
  - Ocular discomfort [Recovered/Resolved]
  - Abnormal dreams [Recovered/Resolved]
  - Neurological symptom [Recovering/Resolving]
  - Dry mouth [Not Recovered/Not Resolved]
